FAERS Safety Report 9263762 (Version 1)
Quarter: 2013Q1

REPORT INFORMATION
  Report Type: Spontaneous
  Country: US (occurrence: None)
  Receive Date: 20121212
  Receipt Date: 20121212
  Transmission Date: 20140127
  Serious: No
  Sender: FDA-Public Use
  Company Number: 1211USA002119

PATIENT
  Sex: Female

DRUGS (12)
  1. VICTRELIS [Suspect]
     Route: 048
  2. RIBAVIRIN [Suspect]
  3. PEGASYS [Suspect]
     Dosage: 180 MCG/0.5ML PFS
     Route: 055
  4. ZOLOFT (SERTRALINE HYDROCHLORIDE) [Concomitant]
  5. LOSARTAN POTASSIUM (+) HYDROCHLOROTHIAZIDE) [Concomitant]
  6. PRILOSEC [Concomitant]
  7. PRILOSEC [Concomitant]
  8. ALEVE (NAPROXEN SODIUM) [Concomitant]
  9. BENADRYL (DIPHENHYDRAMINE HYDROCHLORIDE) [Concomitant]
  10. NEUPOGEN (FILGRASTIM) [Concomitant]
  11. ONDANSETRON (ONDANSETRON) [Concomitant]
  12. FERREX (POLYSACCHARIDE IRON COMPLEX) [Concomitant]

REACTIONS (5)
  - White blood cell count decreased [None]
  - Platelet count decreased [None]
  - Nausea [None]
  - Fatigue [None]
  - Haemoglobin decreased [None]
